FAERS Safety Report 11353305 (Version 1)
Quarter: 2015Q3

REPORT INFORMATION
  Report Type: Spontaneous
  Country: US (occurrence: US)
  Receive Date: 20150807
  Receipt Date: 20150807
  Transmission Date: 20151125
  Serious: Yes (Congenital Anomaly)
  Sender: FDA-Public Use
  Company Number: US-PFIZER INC-2015256503

PATIENT
  Sex: Male
  Weight: 3.3 kg

DRUGS (8)
  1. ZOLOFT [Suspect]
     Active Substance: SERTRALINE HYDROCHLORIDE
     Indication: DEPRESSION
     Dosage: 100 MG, UNK
     Route: 064
     Dates: start: 20000616
  2. SYNTHROID [Concomitant]
     Active Substance: LEVOTHYROXINE SODIUM
     Dosage: 275 ?G, DAILY
     Route: 064
     Dates: start: 20030630
  3. SYNTHROID [Concomitant]
     Active Substance: LEVOTHYROXINE SODIUM
     Dosage: 175 ?G, DAILY
     Route: 064
     Dates: start: 20030317, end: 20030508
  4. ZOLOFT [Suspect]
     Active Substance: SERTRALINE HYDROCHLORIDE
     Dosage: 50 MG, UNK
     Route: 064
     Dates: start: 20000904
  5. ZOLOFT [Suspect]
     Active Substance: SERTRALINE HYDROCHLORIDE
     Dosage: 100 MG, DAILY
     Route: 064
     Dates: start: 20030312
  6. SYNTHROID [Concomitant]
     Active Substance: LEVOTHYROXINE SODIUM
     Indication: THYROID DISORDER
     Dosage: 150 ?G, DAILY
     Route: 064
     Dates: start: 20030312, end: 20030316
  7. SYNTHROID [Concomitant]
     Active Substance: LEVOTHYROXINE SODIUM
     Dosage: 200 ?G, DAILY
     Route: 064
     Dates: start: 20030509, end: 20030629
  8. PRENATE GT [Concomitant]
     Dosage: UNK
     Route: 064

REACTIONS (2)
  - Maternal exposure during pregnancy [Unknown]
  - Congenital anomaly [Unknown]

NARRATIVE: CASE EVENT DATE: 20030926
